FAERS Safety Report 10056253 (Version 2)
Quarter: 2014Q3

REPORT INFORMATION
  Report Type: Spontaneous
  Country: CA (occurrence: CA)
  Receive Date: 20140403
  Receipt Date: 20140915
  Transmission Date: 20150326
  Serious: Yes (Other)
  Sender: FDA-Public Use
  Company Number: CA-PFIZER INC-2014089919

PATIENT
  Age: 58 Year
  Sex: Female

DRUGS (2)
  1. ESTRING [Suspect]
     Active Substance: ESTRADIOL
     Dosage: UNK
     Route: 067
     Dates: start: 20140313, end: 20140316
  2. ESTRING [Suspect]
     Active Substance: ESTRADIOL
     Indication: OESTROGEN DEFICIENCY
     Dosage: UNK
     Route: 067
     Dates: start: 2012, end: 20140312

REACTIONS (3)
  - Vulvovaginal mycotic infection [Recovering/Resolving]
  - Product contamination [Recovering/Resolving]
  - Suspected transmission of an infectious agent via product [Recovering/Resolving]

NARRATIVE: CASE EVENT DATE: 20140316
